FAERS Safety Report 8246790-1 (Version None)
Quarter: 2012Q1

REPORT INFORMATION
  Report Type: 
  Country: None (occurrence: None)
  Receive Date: 20120330
  Receipt Date: 20120326
  Transmission Date: 20120608
  Serious: Yes (Other)
  Sender: FDA-Public Use
  Company Number: US-PFIZER INC-2012077604

PATIENT
  Sex: Female
  Weight: 49.887 kg

DRUGS (3)
  1. LYRICA [Suspect]
     Indication: FIBROMYALGIA
     Dosage: 150 MG, 3X/DAY
     Route: 048
     Dates: end: 20120324
  2. LYRICA [Suspect]
     Indication: SPINAL COLUMN STENOSIS
  3. LYRICA [Suspect]
     Indication: NEURALGIA

REACTIONS (4)
  - DIARRHOEA [None]
  - BEDRIDDEN [None]
  - INSOMNIA [None]
  - WITHDRAWAL SYNDROME [None]
